APPROVED DRUG PRODUCT: ISOSORBIDE MONONITRATE
Active Ingredient: ISOSORBIDE MONONITRATE
Strength: 60MG
Dosage Form/Route: TABLET, EXTENDED RELEASE;ORAL
Application: A075306 | Product #002
Applicant: ACTAVIS ELIZABETH LLC
Approved: Dec 31, 1998 | RLD: No | RS: No | Type: DISCN